FAERS Safety Report 5765499-7 (Version None)
Quarter: 2008Q2

REPORT INFORMATION
  Report Type: 
  Country: None (occurrence: None)
  Receive Date: 20080611
  Receipt Date: 20080610
  Transmission Date: 20081010
  Serious: Yes (Hospitalization)
  Sender: FDA-Public Use
  Company Number: B0524399A

PATIENT
  Age: 71 Year
  Sex: Male

DRUGS (7)
  1. AMOXICILLIN [Suspect]
     Indication: ENDOCARDITIS
     Dosage: 8G PER DAY
     Route: 042
     Dates: end: 20080417
  2. SINEMET [Concomitant]
     Dosage: 500MG PER DAY
     Route: 048
  3. TRAMADOL HCL [Concomitant]
     Route: 048
  4. PAROXETINE HCL [Concomitant]
     Dosage: 5MG PER DAY
     Route: 048
  5. DIGOXIN [Concomitant]
     Dosage: 125MCG PER DAY
     Route: 048
  6. OMEPRAZOLE [Concomitant]
     Dosage: 20MG PER DAY
     Route: 048
  7. DONEPEZIL HCL [Concomitant]
     Dosage: 10MG PER DAY
     Route: 048

REACTIONS (1)
  - RENAL FAILURE ACUTE [None]
